FAERS Safety Report 9670834 (Version 1)
Quarter: 2013Q4

REPORT INFORMATION
  Report Type: Spontaneous
  Country: US (occurrence: None)
  Receive Date: 20131105
  Receipt Date: 20131105
  Transmission Date: 20140711
  Serious: No
  Sender: FDA-Public Use
  Company Number: None

PATIENT
  Age: 42 Year
  Sex: Female
  Weight: 68.04 kg

DRUGS (1)
  1. COUMADIN 1 MG [Suspect]
     Indication: FACTOR V DEFICIENCY
     Dosage: 1 TAB 5 TIMES A WEEK
     Dates: start: 20130912, end: 20131104

REACTIONS (2)
  - Drug dispensing error [None]
  - Blood test abnormal [None]
